FAERS Safety Report 10153018 (Version 1)
Quarter: 2014Q2

REPORT INFORMATION
  Report Type: Spontaneous
  Country: US (occurrence: US)
  Receive Date: 20140505
  Receipt Date: 20140505
  Transmission Date: 20141212
  Serious: Yes (Death, Other)
  Sender: FDA-Public Use
  Company Number: US-PFIZER INC-2014122599

PATIENT
  Age: 75 Year
  Sex: Male
  Weight: 50.34 kg

DRUGS (10)
  1. LYRICA [Suspect]
     Indication: FIBROMYALGIA
     Dosage: 150 MG, 2X/DAY
     Route: 048
  2. MORPHINE [Concomitant]
     Dosage: 30 MG, UNK
  3. HYDROXYCHLOROQUINE [Concomitant]
     Dosage: UNK
  4. TAMSULOSIN [Concomitant]
     Dosage: 0.4 MG, UNK
  5. CLONAZEPAM [Concomitant]
     Dosage: 2 MG, 1X/DAY
  6. FINASTERIDE [Concomitant]
     Dosage: 5 MG, UNK
  7. CITALOPRAM [Concomitant]
     Dosage: 20 MG, 1X/DAY
  8. METHYLPREDNISOLONE [Concomitant]
     Dosage: 4 MG, 3X/DAY
  9. POTASSIUM CHLORIDE [Concomitant]
     Dosage: ONCE A DAY
  10. OMEPRAZOLE [Concomitant]
     Dosage: 20 MG, 1X/DAY

REACTIONS (2)
  - Cerebrovascular accident [Fatal]
  - Gastrointestinal disorder [Unknown]
